FAERS Safety Report 6729842-4 (Version None)
Quarter: 2010Q2

REPORT INFORMATION
  Report Type: 
  Country: None (occurrence: None)
  Receive Date: 20100518
  Receipt Date: 20100506
  Transmission Date: 20101027
  Serious: Yes (Life-Threatening)
  Sender: FDA-Public Use
  Company Number: JP-PFIZER INC-2010040834

PATIENT
  Age: 76 Year
  Sex: Male

DRUGS (2)
  1. SUNITINIB MALATE [Suspect]
     Indication: RENAL CELL CARCINOMA
     Dosage: 50 MG, 1X/DAY
     Route: 048
     Dates: start: 20090421, end: 20090429
  2. ALLOPURINOL [Concomitant]
     Dosage: UNK
     Route: 048

REACTIONS (2)
  - HYPONATRAEMIA [None]
  - TUMOUR LYSIS SYNDROME [None]
